FAERS Safety Report 9958349 (Version 1)
Quarter: 2014Q1

REPORT INFORMATION
  Report Type: Spontaneous
  Country: US (occurrence: US)
  Receive Date: 20140305
  Receipt Date: 20140305
  Transmission Date: 20141002
  Serious: Yes (Hospitalization, Other)
  Sender: FDA-Public Use
  Company Number: US-AMGEN-USASP2014014679

PATIENT
  Age: 54 Year
  Sex: Male

DRUGS (2)
  1. ENBREL [Suspect]
     Indication: RHEUMATOID ARTHRITIS
     Dosage: 50 MG, QWK
     Route: 065
     Dates: start: 20130904, end: 20140210
  2. ENBREL [Suspect]
     Route: 065

REACTIONS (6)
  - Feeling abnormal [Recovered/Resolved]
  - Hypertension [Recovered/Resolved]
  - Vision blurred [Recovered/Resolved]
  - Skin cancer [Unknown]
  - Convulsion [Not Recovered/Not Resolved]
  - Antiphospholipid antibodies positive [Unknown]
